FAERS Safety Report 15235894 (Version 2)
Quarter: 2018Q3

REPORT INFORMATION
  Report Type: Report from Study
  Country: CA (occurrence: CA)
  Receive Date: 20180803
  Receipt Date: 20180810
  Transmission Date: 20181010
  Serious: Yes (Hospitalization)
  Sender: FDA-Public Use
  Company Number: CA-BAYER-2018-142842

PATIENT
  Age: 87 Year
  Sex: Female

DRUGS (1)
  1. ADEMPAS [Suspect]
     Active Substance: RIOCIGUAT
     Indication: PULMONARY HYPERTENSION
     Dosage: 2 MG, TID
     Route: 048
     Dates: start: 20161128

REACTIONS (8)
  - Hospitalisation [Unknown]
  - Dyspepsia [Not Recovered/Not Resolved]
  - Product prescribing issue [None]
  - Incorrect dose administered [Unknown]
  - Oesophageal ulcer [Not Recovered/Not Resolved]
  - Dysphagia [Not Recovered/Not Resolved]
  - Drug dose omission [Unknown]
  - Product availability issue [None]
